FAERS Safety Report 7022664-9 (Version None)
Quarter: 2010Q3

REPORT INFORMATION
  Report Type: 
  Country: None (occurrence: None)
  Receive Date: 20100930
  Receipt Date: 20100927
  Transmission Date: 20110219
  Serious: Yes (Hospitalization, Disabling)
  Sender: FDA-Public Use
  Company Number: DE-BAYER-201030028GPV

PATIENT
  Age: 62 Year
  Sex: Male

DRUGS (1)
  1. AVELOX [Suspect]
     Dates: start: 20100519

REACTIONS (4)
  - DIABETIC FOOT [None]
  - DISABILITY [None]
  - FINGER AMPUTATION [None]
  - GANGRENE [None]
